FAERS Safety Report 22210567 (Version 1)
Quarter: 2023Q2

REPORT INFORMATION
  Report Type: Spontaneous
  Country: FR (occurrence: FR)
  Receive Date: 20230414
  Receipt Date: 20230414
  Transmission Date: 20230721
  Serious: Yes (Hospitalization, Disabling, Other)
  Sender: FDA-Public Use
  Company Number: None

PATIENT
  Age: 70 Year
  Sex: Female

DRUGS (5)
  1. DOXORUBICIN HYDROCHLORIDE [Suspect]
     Active Substance: DOXORUBICIN HYDROCHLORIDE
     Indication: Ovarian cancer
     Dosage: START DATE: 2019, STOP DATE: 2019, NP
     Route: 042
  2. LYNPARZA [Suspect]
     Active Substance: OLAPARIB
     Indication: Ovarian cancer
     Dosage: START DATE: 2016, STOP DATE: JUN-2019, 600 MG (300 MG TWICE/DAY)
     Route: 048
  3. ZEJULA [Suspect]
     Active Substance: NIRAPARIB
     Indication: Ovarian cancer
     Dosage: START DATE: JAN-2020, STOP DATE: AUG-2022, 200 MG
     Route: 048
  4. CARBOPLATIN [Suspect]
     Active Substance: CARBOPLATIN
     Indication: Ovarian cancer
     Dosage: START DATE: 2019, STOP DATE: 2019, NP
     Route: 042
  5. AVASTIN [Concomitant]
     Active Substance: BEVACIZUMAB
     Indication: Ovarian cancer
     Dosage: START DATE: 2016, STOP DATE: 2018, NP, (MAMMAL/HAMSTER/CHO CELLS), DOSAGE FORM: SOLUTION TO DILUTE F
     Route: 042

REACTIONS (2)
  - Myelodysplastic syndrome [Recovered/Resolved with Sequelae]
  - Acute myeloid leukaemia [Not Recovered/Not Resolved]

NARRATIVE: CASE EVENT DATE: 20230315
